FAERS Safety Report 21760166 (Version 7)
Quarter: 2025Q4

REPORT INFORMATION
  Report Type: Spontaneous
  Country: EU (occurrence: EU)
  Receive Date: 20221221
  Receipt Date: 20251225
  Transmission Date: 20260118
  Serious: Yes (Hospitalization, Other)
  Sender: AUROBINDO
  Company Number: EU-002147023-PHHY2019DE007962

PATIENT
  Sex: Male

DRUGS (10)
  1. IBUPROFEN [Suspect]
     Active Substance: IBUPROFEN
     Indication: Axial spondyloarthritis
     Dosage: 300 MILLIGRAM, EVERY WEEK((1 DAY PER WEEK))
     Route: 065
  2. IBUPROFEN [Suspect]
     Active Substance: IBUPROFEN
     Dosage: 200 MILLIGRAM
     Route: 065
  3. IBUPROFEN [Suspect]
     Active Substance: IBUPROFEN
     Dosage: 600 MILLIGRAM, EVERY WEEK((1 DAY PER WEEK))
     Route: 065
     Dates: start: 20201015
  4. IBUPROFEN [Suspect]
     Active Substance: IBUPROFEN
     Dosage: 600 MILLIGRAM, EVERY WEEK((1 DAY PER WEEK))
     Route: 065
     Dates: start: 20201015
  5. IBUPROFEN [Suspect]
     Active Substance: IBUPROFEN
     Dosage: 600 MILLIGRAM, ONCE A DAY ((1 DAY PER WEEK))
     Route: 065
     Dates: start: 20220815, end: 20220920
  6. COSENTYX [Suspect]
     Active Substance: SECUKINUMAB
     Indication: Ankylosing spondylitis
     Dosage: 150 MILLIGRAM EVERY MONTH
     Route: 065
     Dates: start: 20180115, end: 20201215
  7. COSENTYX [Suspect]
     Active Substance: SECUKINUMAB
     Indication: Axial spondyloarthritis
     Dosage: 150 MILLIGRAM(Q5W (EVERY 5 WEEKS))
     Route: 065
  8. COSENTYX [Suspect]
     Active Substance: SECUKINUMAB
     Dosage: 300 MILLIGRAM
     Route: 065
  9. COSENTYX [Suspect]
     Active Substance: SECUKINUMAB
     Dosage: 150 MG, EVERY 4 WEEKS (INJECTION NOS)
     Route: 065
  10. COSENTYX [Suspect]
     Active Substance: SECUKINUMAB
     Dosage: 150 MILLIGRAM 4WEEK
     Route: 065

REACTIONS (21)
  - Ligament sprain [Unknown]
  - Musculoskeletal pain [Recovered/Resolved]
  - Spinal disorder [Recovered/Resolved]
  - Arthralgia [Recovered/Resolved]
  - Axial spondyloarthritis [Recovered/Resolved]
  - Spinal osteoarthritis [Recovered/Resolved]
  - Back pain [Unknown]
  - Condition aggravated [Recovered/Resolved]
  - Pelvic pain [Recovered/Resolved]
  - Colitis ulcerative [Unknown]
  - Influenza [Unknown]
  - Viral infection [Unknown]
  - Arthropod bite [Unknown]
  - Conjunctivitis [Unknown]
  - Tendon disorder [Unknown]
  - Osteoarthritis [Unknown]
  - Upper respiratory tract infection [Unknown]
  - Inappropriate schedule of product administration [Unknown]
  - Computerised tomogram thorax abnormal [Unknown]
  - Rotator cuff syndrome [Unknown]
  - Pelvic misalignment [Unknown]

NARRATIVE: CASE EVENT DATE: 20181121
